FAERS Safety Report 7609417-5 (Version None)
Quarter: 2011Q3

REPORT INFORMATION
  Report Type: 
  Country: None (occurrence: None)
  Receive Date: 20110706
  Receipt Date: 20110624
  Transmission Date: 20111222
  Serious: Yes (Other)
  Sender: FDA-Public Use
  Company Number: 2011SP029564

PATIENT
  Age: 47 Year
  Sex: Male
  Weight: 79 kg

DRUGS (4)
  1. TEMODAL [Suspect]
     Indication: ANAPLASTIC ASTROCYTOMA
     Dosage: PO, 157 MG/M2;QD;PO, 140 MG/M2;QD;PO, 140 MG/M2;QD;PO
     Route: 048
     Dates: start: 20040622, end: 20060101
  2. TEMODAL [Suspect]
     Indication: ANAPLASTIC ASTROCYTOMA
     Dosage: PO, 157 MG/M2;QD;PO, 140 MG/M2;QD;PO, 140 MG/M2;QD;PO
     Route: 048
     Dates: start: 20060918, end: 20080920
  3. TEMODAL [Suspect]
     Indication: ANAPLASTIC ASTROCYTOMA
     Dosage: PO, 157 MG/M2;QD;PO, 140 MG/M2;QD;PO, 140 MG/M2;QD;PO
     Route: 048
     Dates: start: 20100903, end: 20101005
  4. TEMODAL [Suspect]
     Indication: ANAPLASTIC ASTROCYTOMA
     Dosage: PO, 157 MG/M2;QD;PO, 140 MG/M2;QD;PO, 140 MG/M2;QD;PO
     Route: 048
     Dates: start: 20081027, end: 20100618

REACTIONS (1)
  - HAEMANGIOMA [None]
